FAERS Safety Report 10389864 (Version 1)
Quarter: 2014Q1

REPORT INFORMATION
  Report Type: Spontaneous
  Country: US (occurrence: None)
  Receive Date: 20140306
  Receipt Date: 20140306
  Transmission Date: 20141002
  Serious: Yes (Hospitalization)
  Sender: FDA-Public Use
  Company Number: 163-21880-13102859

PATIENT
  Age: 52 Year
  Sex: Male

DRUGS (12)
  1. REVLIMID ( LENALIDOMIDE) (25 MILLIGRAM, CAPSULES) [Suspect]
     Indication: PLASMA CELL MYELOMA
     Dosage: 14 IN 14 D,PO
     Route: 048
     Dates: start: 20121009, end: 20130109
  2. ACYCLOVIR(ACICLOVIR)(UNKNOWN) [Concomitant]
  3. B-12(CYAN000BALAMIN)(UNKNOWN) [Concomitant]
  4. CALCIUM(CALCIUM)(UNKNOWN) [Concomitant]
  5. CENTRUM SILVER ULTRA MENS(CENTRUM SILVER)(UNKNOWN) [Concomitant]
  6. CYCLOPHOSPHAMIDE(CYCLOPHOSPHAMIDE)(UNKNOWN) [Concomitant]
  7. DEXAMETHASONE(DEXAMETHASONE)(UNKNOWN) [Concomitant]
  8. DOXEPIN HCL(DOXEPIN HYDROCHLORIDE)(UNKNOWN) [Concomitant]
  9. ASPIRIN(ACETYLSALICYLIC ACID)(UNKNOWN) [Concomitant]
  10. MORPHINE(MORPHINE)(UNKNOWN) [Concomitant]
  11. LISINOPRIL(LISINOPRIL)(UNKNOWN) [Concomitant]
  12. VELCADE(BORTEZOMIB) (UNKNOWN) [Concomitant]

REACTIONS (1)
  - Venous thrombosis limb [None]
